FAERS Safety Report 18286084 (Version 1)
Quarter: 2020Q3

REPORT INFORMATION
  Report Type: Spontaneous
  Country: JP (occurrence: JP)
  Receive Date: 20200919
  Receipt Date: 20200919
  Transmission Date: 20201103
  Serious: Yes (Death, Other)
  Sender: FDA-Public Use
  Company Number: JP-AMGEN-JPNSP2020149864

PATIENT
  Age: 43 Year
  Sex: Male

DRUGS (1)
  1. BLINCYTO [Suspect]
     Active Substance: BLINATUMOMAB
     Indication: ACUTE LYMPHOCYTIC LEUKAEMIA
     Dosage: UNK
     Route: 065

REACTIONS (7)
  - Cytokine release syndrome [Unknown]
  - Thrombocytopenia [Unknown]
  - Graft versus host disease [Fatal]
  - Aspartate aminotransferase abnormal [Unknown]
  - Anaemia [Unknown]
  - Neutropenia [Unknown]
  - Alanine aminotransferase abnormal [Unknown]
